FAERS Safety Report 18103071 (Version 1)
Quarter: 2020Q3

REPORT INFORMATION
  Report Type: Spontaneous
  Country: US (occurrence: US)
  Receive Date: 20200731
  Receipt Date: 20200731
  Transmission Date: 20201103
  Serious: Yes (Death)
  Sender: FDA-Public Use
  Company Number: None

PATIENT
  Age: 49 Year
  Sex: Male
  Weight: 110 kg

DRUGS (20)
  1. LOSARTAN. [Concomitant]
     Active Substance: LOSARTAN
     Dates: start: 20200728
  2. VECURONIUM [Concomitant]
     Active Substance: VECURONIUM BROMIDE
     Dates: start: 20200731, end: 20200731
  3. ASPIRIN. [Concomitant]
     Active Substance: ASPIRIN
     Dates: start: 20200728
  4. TICAGRELOR. [Concomitant]
     Active Substance: TICAGRELOR
     Dates: start: 20200729
  5. FAMOTIDINE. [Concomitant]
     Active Substance: FAMOTIDINE
     Dates: start: 20200728
  6. ATORVASTATIN [Concomitant]
     Active Substance: ATORVASTATIN
     Dates: start: 20200728
  7. ENOXAPARIN [Concomitant]
     Active Substance: ENOXAPARIN
     Dates: start: 20200728
  8. FUROSEMIDE. [Concomitant]
     Active Substance: FUROSEMIDE
     Dates: start: 20200728
  9. METOPROLOL. [Concomitant]
     Active Substance: METOPROLOL
     Dates: start: 20200728
  10. GABAPENTIN. [Concomitant]
     Active Substance: GABAPENTIN
     Dates: start: 20200728
  11. INSULIN [Concomitant]
     Active Substance: INSULIN NOS
     Dates: start: 20200728
  12. ISOSORBIDE DINITRATE. [Concomitant]
     Active Substance: ISOSORBIDE DINITRATE
     Dates: start: 20200728
  13. MORPHINE [Concomitant]
     Active Substance: MORPHINE
     Dates: start: 20200728
  14. DOXAZOSIN [Concomitant]
     Active Substance: DOXAZOSIN MESYLATE
     Dates: start: 20200728
  15. OXYCODONE?ACETAMINOPHEN [Concomitant]
     Active Substance: ACETAMINOPHEN\OXYCODONE HYDROCHLORIDE
     Dates: start: 20200728
  16. AMITRIPTYLINE [Concomitant]
     Active Substance: AMITRIPTYLINE
  17. REMDESIVIR. [Suspect]
     Active Substance: REMDESIVIR
     Indication: COVID-19 PNEUMONIA
     Route: 042
     Dates: start: 20200729, end: 20200731
  18. DEXAMETHASONE. [Concomitant]
     Active Substance: DEXAMETHASONE
     Dates: start: 20200728
  19. ROPINIROLE. [Concomitant]
     Active Substance: ROPINIROLE
     Dates: start: 20200728
  20. DULOXETINE. [Concomitant]
     Active Substance: DULOXETINE
     Dates: start: 20200728

REACTIONS (3)
  - Cardiac arrest [None]
  - Bradycardia [None]
  - Product storage error [None]

NARRATIVE: CASE EVENT DATE: 20200731
